FAERS Safety Report 8358483-0 (Version None)
Quarter: 2012Q2

REPORT INFORMATION
  Report Type: 
  Country: None (occurrence: None)
  Receive Date: 20120514
  Receipt Date: 20120508
  Transmission Date: 20120825
  Serious: Yes (Other)
  Sender: FDA-Public Use
  Company Number: DE-AMGEN-DEUSP2012011894

PATIENT
  Age: 70 Year
  Sex: Female
  Weight: 88 kg

DRUGS (4)
  1. NEULASTA [Suspect]
     Indication: PROPHYLAXIS
     Dosage: 6 MG, UNK
     Route: 058
     Dates: start: 20120216
  2. CYCLOPHOSPHAMIDE [Concomitant]
     Indication: BREAST CANCER
     Dosage: 1181.39 MG, UNK
     Route: 042
     Dates: start: 20120104, end: 20120312
  3. EPIRUBICIN [Concomitant]
     Indication: BREAST CANCER
     Dosage: 177.21 MG, UNK
     Route: 042
     Dates: start: 20120104, end: 20120312
  4. NEUPOGEN [Suspect]
     Indication: NEUTROPENIA

REACTIONS (2)
  - NEUTROPENIA [None]
  - LEUKOPENIA [None]
